FAERS Safety Report 6112703-1 (Version None)
Quarter: 2009Q1

REPORT INFORMATION
  Report Type: 
  Country: None (occurrence: None)
  Receive Date: 20090312
  Receipt Date: 20090303
  Transmission Date: 20090719
  Serious: Yes (Hospitalization, Other)
  Sender: FDA-Public Use
  Company Number: US-AMGEN-QUU334939

PATIENT
  Sex: Female
  Weight: 64 kg

DRUGS (1)
  1. ENBREL [Suspect]
     Indication: RHEUMATOID ARTHRITIS
     Route: 058
     Dates: start: 20051201

REACTIONS (6)
  - CARDIAC DISORDER [None]
  - LARGE GRANULAR LYMPHOCYTOSIS [None]
  - LYMPHADENOPATHY [None]
  - PLEURAL EFFUSION [None]
  - RENAL INJURY [None]
  - TONSILLAR HYPERTROPHY [None]
